FAERS Safety Report 10329499 (Version 3)
Quarter: 2015Q2

REPORT INFORMATION
  Report Type: Spontaneous
  Country: US (occurrence: None)
  Receive Date: 20120817
  Receipt Date: 20150604
  Transmission Date: 20150821
  Serious: Yes (Hospitalization, Other)
  Sender: FDA-Public Use
  Company Number: ADR-2011-11521

PATIENT
  Sex: Female

DRUGS (3)
  1. BACLOFEN INTRATHECAL (BACLOFEN INJECTION) 1000 MCG/ML [Suspect]
     Active Substance: BACLOFEN
     Indication: MULTIPLE SCLEROSIS
     Dosage: 300 MCG/DAY
  2. ORAL BACLOFEN [Suspect]
     Active Substance: BACLOFEN
  3. BACLOFEN INTRATHECAL (BACLOFEN INJECTION) 1000 MCG/ML [Suspect]
     Active Substance: BACLOFEN
     Indication: MUSCLE SPASTICITY
     Dosage: 300 MCG/DAY

REACTIONS (13)
  - Muscle spasticity [None]
  - Device failure [None]
  - Unresponsive to stimuli [None]
  - Feeling cold [None]
  - Device computer issue [None]
  - Overdose [None]
  - Underdose [None]
  - Drug withdrawal syndrome [None]
  - Drug ineffective [None]
  - Sudden onset of sleep [None]
  - Diplopia [None]
  - Muscle rigidity [None]
  - Therapeutic response decreased [None]
